FAERS Safety Report 23803801 (Version 1)
Quarter: 2024Q2

REPORT INFORMATION
  Report Type: Report from Study
  Country: GB (occurrence: GB)
  Receive Date: 20240501
  Receipt Date: 20240501
  Transmission Date: 20240715
  Serious: Yes (Other)
  Sender: FDA-Public Use
  Company Number: GB-UCBSA-2024011220

PATIENT
  Age: 74 Year
  Sex: Female

DRUGS (23)
  1. BIMEKIZUMAB [Suspect]
     Active Substance: BIMEKIZUMAB
     Indication: Product used for unknown indication
     Dosage: 320 MILLIGRAM, EV 4 WEEKS
     Route: 058
     Dates: start: 20240121
  2. AMITRIPTYLINE [Concomitant]
     Active Substance: AMITRIPTYLINE
     Indication: Fibromyalgia
     Dosage: 20 MILLIGRAM AT NIGHT
     Route: 048
  3. REFRESH CELLUVISC [Concomitant]
     Active Substance: CARBOXYMETHYLCELLULOSE SODIUM
     Indication: Psoriasis
     Dosage: 1 PERCENT AS DIRECTED
     Route: 047
  4. DERMOL [Concomitant]
     Active Substance: BENZALKONIUM CHLORIDE\CHLORHEXIDINE HYDROCHLORIDE\ISOPROPYL MYRISTATE\PARAFFIN
     Indication: Psoriasis
     Dosage: UNK, AS DIRECTED, LOTION
     Route: 061
  5. DESLORATADINE [Concomitant]
     Active Substance: DESLORATADINE
     Indication: Sinusitis
     Dosage: 5 MILLIGRAM, DAILY
     Route: 048
  6. BUDESONIDE\FORMOTEROL [Concomitant]
     Active Substance: BUDESONIDE\FORMOTEROL
     Indication: Asthma
     Dosage: 320MG /9MCG, TWICE DAILY
     Route: 048
  7. ENSTILAR [Concomitant]
     Active Substance: BETAMETHASONE DIPROPIONATE\CALCIPOTRIENE HYDRATE
     Indication: Psoriasis
     Dosage: DAILY FOR 4WKS THEN 4WKS OFF, FOAM
     Route: 061
  8. MINERAL OIL\PETROLATUM\WAX, EMULSIFYING [Concomitant]
     Active Substance: MINERAL OIL\PETROLATUM\WAX, EMULSIFYING
     Indication: Psoriasis
     Dosage: AS DIRECTED
     Route: 061
  9. FLURBIPROFEN [Concomitant]
     Active Substance: FLURBIPROFEN
     Indication: Arthralgia
     Dosage: UNK, THREE TIMES A DAY
     Route: 061
  10. GELTEARS [Concomitant]
     Indication: Psoriasis
     Dosage: 1 DROP, AS NEEDED (PRN)
     Route: 047
  11. HYDROCORTISONE\MICONAZOLE [Concomitant]
     Active Substance: HYDROCORTISONE\MICONAZOLE
     Indication: Psoriasis
     Dosage: APPLY TWICE DAILY
     Route: 061
  12. LEVOTHYROXINE SODIUM [Concomitant]
     Active Substance: LEVOTHYROXINE SODIUM
     Indication: Hypothyroidism
     Dosage: 75 MICROGRAM, EVERY OTHER DAY
     Route: 048
  13. LEVOTHYROXINE SODIUM [Concomitant]
     Active Substance: LEVOTHYROXINE SODIUM
     Dosage: 100 MICROGRAM, EVERY OTHER DAY
     Route: 048
  14. ROSUVASTATIN [Concomitant]
     Active Substance: ROSUVASTATIN
     Indication: Hyperlipidaemia
     Dosage: 5 MILLIGRAM, ONCE DAILY (QD)
     Route: 048
  15. ALBUTEROL [Concomitant]
     Active Substance: ALBUTEROL
     Indication: Asthma
     Dosage: 200 MICROGRAM (2 PUFFS), AS NEEDED (PRN), INHALER
     Route: 048
  16. APREMILAST [Concomitant]
     Active Substance: APREMILAST
     Indication: Psoriasis
     Dosage: 60 MILLIGRAM, 2X/DAY (BID)
     Route: 048
  17. ADALIMUMAB [Concomitant]
     Active Substance: ADALIMUMAB\ISOPROPYL ALCOHOL
     Indication: Psoriasis
     Dosage: 40 MILLIGRAM
     Route: 058
  18. ACITRETIN [Concomitant]
     Active Substance: ACITRETIN
     Indication: Psoriasis
     Dosage: 20 MILLIGRAM, 2X/DAY (BID)
     Route: 048
  19. VITAMIN D NOS [Concomitant]
     Active Substance: VITAMIN D NOS
     Indication: Product used for unknown indication
     Dosage: UNK
     Route: 048
  20. ACETAMINOPHEN [Concomitant]
     Active Substance: ACETAMINOPHEN
     Indication: Pain
     Dosage: 1000 MILLIGRAM UP TO FOUR TIMES A DAY
     Route: 048
  21. CANNABIS SATIVA FLOWERING TOP [Concomitant]
     Active Substance: CANNABIS SATIVA FLOWERING TOP
     Indication: Pain
     Dosage: 60 MILLIGRAM, 4X/DAY (QID)
     Route: 048
  22. HERBALS\TURMERIC [Concomitant]
     Active Substance: HERBALS\TURMERIC
     Indication: Pain
     Dosage: DAILY
     Route: 048
  23. NYSTATIN [Concomitant]
     Active Substance: NYSTATIN
     Indication: Oral candidiasis
     Dosage: 100000, FOUR TIMES A DAY
     Route: 048
     Dates: start: 20240322, end: 20240329

REACTIONS (20)
  - Lower respiratory tract infection [Recovered/Resolved]
  - Sinusitis [Recovered/Resolved]
  - Freezing phenomenon [Not Recovered/Not Resolved]
  - Oropharyngeal pain [Recovering/Resolving]
  - Productive cough [Recovering/Resolving]
  - Dyspnoea [Recovering/Resolving]
  - Nasal obstruction [Recovering/Resolving]
  - Rhinorrhoea [Recovering/Resolving]
  - Facial pain [Recovering/Resolving]
  - Headache [Recovering/Resolving]
  - Ear pain [Recovering/Resolving]
  - Hypoaesthesia [Recovered/Resolved]
  - Blister [Recovering/Resolving]
  - Abdominal pain lower [Recovering/Resolving]
  - Peripheral swelling [Recovering/Resolving]
  - Pruritus [Recovering/Resolving]
  - Psoriasis [Recovering/Resolving]
  - Ophthalmic migraine [Recovering/Resolving]
  - Dry eye [Recovering/Resolving]
  - Oral candidiasis [Recovering/Resolving]

NARRATIVE: CASE EVENT DATE: 20240101
